FAERS Safety Report 8545066-2 (Version None)
Quarter: 2012Q3

REPORT INFORMATION
  Report Type: 
  Country: None (occurrence: None)
  Receive Date: 20120727
  Receipt Date: 20120718
  Transmission Date: 20120928
  Serious: Yes (Hospitalization)
  Sender: FDA-Public Use
  Company Number: IT-EISAI INC-E7867-00273-SPO-IT

PATIENT
  Age: 43 Year

DRUGS (3)
  1. GLIADEL [Suspect]
     Indication: GLIOBLASTOMA
     Dosage: UNKNOWN
     Route: 018
  2. BETAMETASONE [Concomitant]
     Dosage: 4-16MG/DAY
     Route: 065
  3. TEMOZOLOMIDE [Suspect]
     Dosage: 150-200MG/M^2
     Route: 065

REACTIONS (2)
  - DEEP VEIN THROMBOSIS [None]
  - CONVULSION [None]
